FAERS Safety Report 26093848 (Version 4)
Quarter: 2025Q4

REPORT INFORMATION
  Report Type: Spontaneous
  Country: EU (occurrence: EU)
  Receive Date: 20251126
  Receipt Date: 20251211
  Transmission Date: 20260118
  Serious: Yes (Hospitalization, Other)
  Sender: MYLAN
  Company Number: EU-Accord-510491

PATIENT
  Age: 71 Year
  Sex: Male

DRUGS (34)
  1. LANSOPRAZOLE [Interacting]
     Active Substance: LANSOPRAZOLE
     Indication: Product used for unknown indication
     Dosage: UNK
  2. PEMETREXED [Interacting]
     Active Substance: PEMETREXED
     Indication: Non-small cell lung cancer metastatic
     Dosage: 500 MILLIGRAM/SQ. METER, COMBINATION WITH CARBOPLATIN AND PEMBROLIZUMAB
     Dates: start: 20240205, end: 20240429
  3. PEMETREXED [Interacting]
     Active Substance: PEMETREXED
     Indication: Metastases to adrenals
     Dosage: 500 MILLIGRAM/SQ. METER, Q3W, IN COMBINATION WITH PEMBROLIZUMAB ONLY
     Dates: start: 20240522, end: 20240730
  4. PEMETREXED [Interacting]
     Active Substance: PEMETREXED
     Indication: Metastases to pleura
     Dosage: UNK
  5. PEMETREXED [Interacting]
     Active Substance: PEMETREXED
     Indication: Metastases to lymph nodes
  6. PEMETREXED [Interacting]
     Active Substance: PEMETREXED
     Indication: Chemotherapy
  7. TADALAFIL [Interacting]
     Active Substance: TADALAFIL
     Indication: Product used for unknown indication
     Dosage: UNK (ONGOING FOR OVER A YEAR)
  8. ROSUVASTATIN [Interacting]
     Active Substance: ROSUVASTATIN
     Indication: Product used for unknown indication
     Dosage: UNK
  9. BISOPROLOL [Interacting]
     Active Substance: BISOPROLOL
     Indication: Product used for unknown indication
     Dosage: UNK
  10. CARBOPLATIN [Interacting]
     Active Substance: CARBOPLATIN
     Indication: Non-small cell lung cancer metastatic
     Dosage: UNK
     Dates: start: 20240205, end: 20240429
  11. PREDNISONE [Interacting]
     Active Substance: PREDNISONE
     Indication: Non-small cell lung cancer metastatic
     Dosage: UNK
  12. PREDNISONE [Interacting]
     Active Substance: PREDNISONE
     Indication: Chemotherapy toxicity attenuation
     Dosage: UNK
     Dates: start: 20240205, end: 20240429
  13. PREDNISONE [Interacting]
     Active Substance: PREDNISONE
     Indication: Antiinflammatory therapy
  14. AMLODIPINE\PERINDOPRIL [Interacting]
     Active Substance: AMLODIPINE\PERINDOPRIL
     Indication: Product used for unknown indication
     Dosage: UNK
  15. ASPIRIN [Interacting]
     Active Substance: ASPIRIN
     Indication: Product used for unknown indication
     Dosage: UNK
  16. AMLODIPINE\PERINDOPRIL [Interacting]
     Active Substance: AMLODIPINE\PERINDOPRIL
     Indication: Product used for unknown indication
     Dosage: UNK
  17. LEUCOVORIN [Suspect]
     Active Substance: LEUCOVORIN\LEUCOVORIN CALCIUM
     Indication: Non-small cell lung cancer metastatic
     Dosage: UNK
  18. LEUCOVORIN [Suspect]
     Active Substance: LEUCOVORIN\LEUCOVORIN CALCIUM
     Indication: Chemotherapy toxicity attenuation
     Dosage: UNK
     Dates: start: 20240205, end: 20240429
  19. PEMBROLIZUMAB [Interacting]
     Active Substance: PEMBROLIZUMAB
     Indication: Non-small cell lung cancer metastatic
     Dosage: UNK,GIVEN AS COMBINATION THERAPY WITH PEMETEREXED, THEN CONTINUED AS MONOTHERAPY
     Dates: start: 20240522, end: 202407
  20. PEMBROLIZUMAB [Interacting]
     Active Substance: PEMBROLIZUMAB
     Indication: Non-small cell lung cancer
     Dosage: UNK
  21. PEMBROLIZUMAB [Interacting]
     Active Substance: PEMBROLIZUMAB
     Indication: Chemotherapy
  22. VITAMIN B12 [Interacting]
     Active Substance: CYANOCOBALAMIN
     Indication: Non-small cell lung cancer metastatic
     Dosage: UNK
  23. VITAMIN B12 [Interacting]
     Active Substance: CYANOCOBALAMIN
     Indication: Chemotherapy toxicity attenuation
     Dosage: UNK
     Dates: start: 20240205, end: 20240429
  24. TADALAFIL [Concomitant]
     Active Substance: TADALAFIL
     Indication: Product used for unknown indication
     Dosage: UNK
  25. LEUCOVORIN [Concomitant]
     Active Substance: LEUCOVORIN\LEUCOVORIN CALCIUM
     Indication: Chemotherapy side effect prophylaxis
     Dosage: UNK
  26. PEMBROLIZUMAB [Concomitant]
     Active Substance: PEMBROLIZUMAB
     Indication: Non-small cell lung cancer metastatic
     Dosage: UNK
  27. PREDNISONE [Concomitant]
     Active Substance: PREDNISONE
     Indication: Chemotherapy side effect prophylaxis
     Dosage: UNK
  28. VITAMIN B12 [Concomitant]
     Active Substance: CYANOCOBALAMIN
     Indication: Chemotherapy side effect prophylaxis
     Dosage: UNK
  29. CARBOPLATIN [Concomitant]
     Active Substance: CARBOPLATIN
     Indication: Non-small cell lung cancer
     Dosage: UNK
     Dates: start: 20240205, end: 20240429
  30. ASPIRIN [Concomitant]
     Active Substance: ASPIRIN
     Indication: Product used for unknown indication
     Dosage: UNK
  31. AMLODIPINE\PERINDOPRIL [Concomitant]
     Active Substance: AMLODIPINE\PERINDOPRIL
     Indication: Product used for unknown indication
     Dosage: UNK
  32. ROSUVASTATIN [Concomitant]
     Active Substance: ROSUVASTATIN
     Indication: Product used for unknown indication
     Dosage: UNK
  33. LANSOPRAZOLE [Concomitant]
     Active Substance: LANSOPRAZOLE
     Indication: Product used for unknown indication
     Dosage: UNK
  34. BISOPROLOL [Concomitant]
     Active Substance: BISOPROLOL
     Indication: Product used for unknown indication
     Dosage: UNK

REACTIONS (13)
  - C-reactive protein increased [Recovered/Resolved]
  - Tissue infiltration [Recovered/Resolved]
  - Oedema peripheral [Recovered/Resolved]
  - Skin fibrosis [Recovered/Resolved]
  - Pseudocellulitis [Recovered/Resolved]
  - Erysipelas [Recovered/Resolved]
  - Oedema [Recovered/Resolved]
  - Pyrexia [Recovered/Resolved]
  - Cardiac failure [Recovered/Resolved]
  - Cellulitis [Recovered/Resolved]
  - Erythema [Recovered/Resolved]
  - Pain [Recovered/Resolved]
  - Drug interaction [Unknown]

NARRATIVE: CASE EVENT DATE: 20240530
